FAERS Safety Report 12222268 (Version 1)
Quarter: 2016Q1

REPORT INFORMATION
  Report Type: Spontaneous
  Country: US (occurrence: US)
  Receive Date: 20160330
  Receipt Date: 20160330
  Transmission Date: 20160526
  Serious: No
  Sender: FDA-Public Use
  Company Number: US-MYLANLABS-2015M1029775

PATIENT
  Sex: Male
  Weight: 111.11 kg

DRUGS (4)
  1. FENTANYL. [Suspect]
     Active Substance: FENTANYL
     Indication: PAIN
     Dosage: 12.5 ?G, QH, CHANGE Q72H
     Route: 062
  2. FENTANYL. [Suspect]
     Active Substance: FENTANYL
     Indication: PAIN
     Dosage: 50 ?G, QH, CHANGED Q72H
     Route: 062
  3. FENTANYL. [Suspect]
     Active Substance: FENTANYL
     Dosage: 50 ?G, QH, CHANGED Q48H
     Route: 062
  4. FENTANYL. [Suspect]
     Active Substance: FENTANYL
     Indication: PAIN
     Dosage: 25 ?G, QH, CHANGE Q72H
     Route: 062

REACTIONS (7)
  - Drug ineffective [Unknown]
  - Drug administration error [Unknown]
  - Drug withdrawal syndrome [None]
  - Fatigue [Unknown]
  - Constipation [Unknown]
  - Pruritus [Unknown]
  - Rash [Unknown]
